FAERS Safety Report 6241758-9 (Version None)
Quarter: 2009Q2

REPORT INFORMATION
  Report Type: 
  Country: None (occurrence: None)
  Receive Date: 20090623
  Receipt Date: 20090611
  Transmission Date: 20091009
  Serious: Yes (Hospitalization, Other)
  Sender: FDA-Public Use
  Company Number: CH-ELI_LILLY_AND_COMPANY-CH200906003019

PATIENT
  Age: 38 Year
  Sex: Male

DRUGS (5)
  1. ZYPREXA [Suspect]
     Dosage: 10 MG, 2/D
     Route: 048
     Dates: end: 20090517
  2. ENTUMIN [Concomitant]
     Dosage: 40 MG, 3/D
     Route: 048
     Dates: end: 20090516
  3. CLOPIXOL [Concomitant]
     Dosage: 10 GTT, 2/D
     Route: 048
     Dates: end: 20090516
  4. ORFIRIL [Concomitant]
     Dosage: 300 MG, 2/D
     Route: 048
     Dates: start: 20090513, end: 20090517
  5. PSYCHOPAX [Concomitant]
     Dosage: 10 GTT, 3/D
     Route: 048
     Dates: end: 20090517

REACTIONS (11)
  - AGITATION [None]
  - BLOOD CREATINE PHOSPHOKINASE INCREASED [None]
  - BODY TEMPERATURE INCREASED [None]
  - CATATONIA [None]
  - HYPERTENSION [None]
  - HYPERTONIA [None]
  - INFECTION [None]
  - NEUROLEPTIC MALIGNANT SYNDROME [None]
  - RHABDOMYOLYSIS [None]
  - SOMNOLENCE [None]
  - TACHYCARDIA [None]
